FAERS Safety Report 8784664 (Version 1)
Quarter: 2012Q4

REPORT INFORMATION
  Report Type: Spontaneous
  Country: US (occurrence: None)
  Receive Date: 20120830
  Receipt Date: 20120830
  Transmission Date: 20130627
  Serious: Yes (Other)
  Sender: FDA-Public Use
  Company Number: 2012P1054478

PATIENT
  Age: 65 Year
  Sex: Female

DRUGS (3)
  1. METRONIDAZOLE [Suspect]
     Indication: TRICHOMONIASIS
  2. METRONIDAZOLE [Suspect]
     Indication: TRICHOMONIASIS
  3. METRONIDAZOLE [Suspect]
     Indication: TRICHOMONIASIS
     Route: 048

REACTIONS (5)
  - Throat irritation [None]
  - Nasal congestion [None]
  - Pruritus [None]
  - Vomiting [None]
  - Gastrointestinal tract irritation [None]
